FAERS Safety Report 9205870 (Version 1)
Quarter: 2013Q2

REPORT INFORMATION
  Report Type: Spontaneous
  Country: US (occurrence: None)
  Receive Date: 20130401
  Receipt Date: 20130401
  Transmission Date: 20140414
  Serious: Yes (Death)
  Sender: FDA-Public Use
  Company Number: CLCY20130057

PATIENT
  Age: 54 Year
  Sex: Male

DRUGS (1)
  1. COLCRYS 0.6 MG [Suspect]
     Indication: GOUT
     Route: 048

REACTIONS (1)
  - Death [None]
